FAERS Safety Report 16576830 (Version 1)
Quarter: 2019Q3

REPORT INFORMATION
  Report Type: Spontaneous
  Country: US (occurrence: US)
  Receive Date: 20190715
  Receipt Date: 20190715
  Transmission Date: 20191004
  Serious: Yes (Death)
  Sender: FDA-Public Use
  Company Number: None

PATIENT
  Sex: Male

DRUGS (4)
  1. LOMOTIL, ZOFRAN, OXYCOD/APAP [Concomitant]
  2. METFORMIN, LOVASTATIN, DOCUSATE, LIDOCAINE [Concomitant]
  3. ZOLPIDEM, PROCHLORPER, LISINOPRIL, BENADRYL [Concomitant]
  4. AFINITOR [Suspect]
     Active Substance: EVEROLIMUS
     Indication: RENAL CANCER
     Route: 048
     Dates: start: 20190305

REACTIONS (1)
  - Death [None]
